FAERS Safety Report 6225754-3 (Version None)
Quarter: 2009Q2

REPORT INFORMATION
  Report Type: 
  Country: None (occurrence: None)
  Receive Date: 20090612
  Receipt Date: 20090501
  Transmission Date: 20091009
  Serious: No
  Sender: FDA-Public Use
  Company Number: US-ABBOTT-09P-163-0569835-00

PATIENT
  Sex: Female
  Weight: 124.85 kg

DRUGS (10)
  1. HUMIRA [Suspect]
     Indication: CROHN'S DISEASE
     Route: 058
     Dates: start: 20070401
  2. ASACOL [Concomitant]
     Indication: CROHN'S DISEASE
     Route: 048
  3. LEXAPRO [Concomitant]
     Indication: DEPRESSION
     Route: 048
  4. CLONAZEPAM [Concomitant]
     Indication: CONVULSION
     Route: 048
  5. BISOPROLOL FUMARATE AND HYDROCHLOROTHIAZIDE [Concomitant]
     Indication: HYPERTENSION
     Dosage: 2.5/6.25
     Route: 048
  6. VICODIN [Concomitant]
     Indication: PAIN
     Route: 048
  7. RHINOCORT [Concomitant]
     Indication: SEASONAL ALLERGY
     Route: 045
  8. ASTELIN [Concomitant]
     Indication: SEASONAL ALLERGY
     Route: 045
  9. CLARITIN-D [Concomitant]
     Indication: SEASONAL ALLERGY
     Route: 048
  10. DIAZEPAM [Concomitant]
     Indication: DRUG USE FOR UNKNOWN INDICATION

REACTIONS (5)
  - BLOOD CHOLESTEROL INCREASED [None]
  - CHOLELITHIASIS [None]
  - NAUSEA [None]
  - PAIN [None]
  - SINUSITIS [None]
